FAERS Safety Report 24380231 (Version 1)
Quarter: 2024Q3

REPORT INFORMATION
  Report Type: Spontaneous
  Country: DK (occurrence: DK)
  Receive Date: 20240930
  Receipt Date: 20240930
  Transmission Date: 20241016
  Serious: Yes (Other)
  Sender: TEVA
  Company Number: None

PATIENT
  Age: 28 Year
  Sex: Male

DRUGS (1)
  1. TRAMADOL [Suspect]
     Active Substance: TRAMADOL
     Indication: Product used for unknown indication
     Dosage: DOSAGE: UNKNOWN. STRENGTH: UNKNOWN.?PATIENT TOOK THE DRUG FOR APPROX. 3-4 YEARS WITH A BREAK AT A...
     Route: 065
     Dates: end: 2023

REACTIONS (2)
  - Epilepsy [Unknown]
  - Product administered from unauthorised provider [Recovered/Resolved]

NARRATIVE: CASE EVENT DATE: 20221201
